FAERS Safety Report 15076176 (Version 2)
Quarter: 2018Q3

REPORT INFORMATION
  Report Type: Report from Study
  Country: FR (occurrence: FR)
  Receive Date: 20180627
  Receipt Date: 20180702
  Transmission Date: 20181010
  Serious: Yes (Life-Threatening, Hospitalization)
  Sender: FDA-Public Use
  Company Number: PHHO2018FR007592

PATIENT
  Age: 14 Year
  Sex: Male

DRUGS (7)
  1. VINBLASTINE SULFATE. [Suspect]
     Active Substance: VINBLASTINE SULFATE
     Indication: GLIOMA
     Dosage: 4.11 MG, UNK
     Route: 042
     Dates: start: 20180522, end: 20180604
  2. PROZAC [Concomitant]
     Active Substance: FLUOXETINE HYDROCHLORIDE
     Indication: PRODUCT USED FOR UNKNOWN INDICATION
     Dosage: 10 MG, QD
     Route: 065
     Dates: start: 20180514
  3. AMN107 [Suspect]
     Active Substance: NILOTINIB
     Indication: GLIOMA
     Dosage: 300 MG, UNK
     Route: 048
     Dates: start: 20180522, end: 20180610
  4. VINBLASTINE SULFATE. [Suspect]
     Active Substance: VINBLASTINE SULFATE
     Dosage: 4.11 MG, UNK
     Route: 042
     Dates: start: 20180618
  5. OLIMEL [Concomitant]
     Active Substance: AMINO ACIDS\DEXTROSE\SOYBEAN OIL
     Indication: PRODUCT USED FOR UNKNOWN INDICATION
     Dosage: 1000 ML (DURING NIGHT)
     Route: 065
  6. BACTRIM [Concomitant]
     Active Substance: SULFAMETHOXAZOLE\TRIMETHOPRIM
     Indication: PRODUCT USED FOR UNKNOWN INDICATION
     Dosage: 800 MG, QW3
     Route: 065
  7. AMN107 [Suspect]
     Active Substance: NILOTINIB
     Dosage: 300 MG, UNK
     Route: 048
     Dates: start: 20180614

REACTIONS (1)
  - Enterobacter sepsis [Recovered/Resolved]

NARRATIVE: CASE EVENT DATE: 20180610
